FAERS Safety Report 7674295-5 (Version None)
Quarter: 2011Q3

REPORT INFORMATION
  Report Type: 
  Country: None (occurrence: None)
  Receive Date: 20110810
  Receipt Date: 20101007
  Transmission Date: 20111222
  Serious: No
  Sender: FDA-Public Use
  Company Number: US-BAUSCH-2010BL005770

PATIENT
  Sex: Female

DRUGS (5)
  1. CROMOLYN SODIUM [Suspect]
     Route: 045
  2. CROMOLYN SODIUM [Suspect]
     Indication: PRODUCT USED FOR UNKNOWN INDICATION
     Route: 045
  3. CROMOLYN SODIUM [Suspect]
     Route: 045
  4. CROMOLYN SODIUM [Suspect]
     Route: 045
  5. CROMOLYN SODIUM [Suspect]
     Route: 045

REACTIONS (1)
  - DRUG INEFFECTIVE [None]
